FAERS Safety Report 5993732-5 (Version None)
Quarter: 2008Q4

REPORT INFORMATION
  Report Type: 
  Country: None (occurrence: None)
  Receive Date: 20081212
  Receipt Date: 20081202
  Transmission Date: 20090506
  Serious: Yes (Death, Hospitalization)
  Sender: FDA-Public Use
  Company Number: ES-ELI_LILLY_AND_COMPANY-ES200812000823

PATIENT
  Age: 77 Year
  Sex: Female

DRUGS (7)
  1. FORTEO [Suspect]
     Indication: OSTEOPOROSIS
     Dosage: 20 UG, UNKNOWN
     Route: 058
     Dates: start: 20080201, end: 20080901
  2. OMEPRAZOLE [Concomitant]
     Dosage: UNK, UNKNOWN
     Route: 065
  3. LERZAN [Concomitant]
     Dosage: UNK, UNKNOWN
     Route: 065
  4. COROPRES [Concomitant]
     Dosage: UNK, UNKNOWN
     Route: 065
  5. PAROXETINE HCL [Concomitant]
     Dosage: UNK, UNKNOWN
     Route: 065
  6. ORFIDAL [Concomitant]
     Dosage: UNK, UNKNOWN
     Route: 065
  7. FALCOL [Concomitant]
     Dosage: UNK, UNKNOWN
     Route: 065

REACTIONS (7)
  - ANOREXIA [None]
  - ASTHENIA [None]
  - COMA [None]
  - DEATH [None]
  - GASTRIC CANCER [None]
  - METASTASES TO ABDOMINAL CAVITY [None]
  - RENAL FAILURE [None]
